FAERS Safety Report 6638784-4 (Version None)
Quarter: 2010Q1

REPORT INFORMATION
  Report Type: 
  Country: None (occurrence: None)
  Receive Date: 20100317
  Receipt Date: 20100305
  Transmission Date: 20100710
  Serious: Yes (Hospitalization)
  Sender: FDA-Public Use
  Company Number: FR-PFIZER INC-2010028755

PATIENT
  Age: 60 Year
  Sex: Male

DRUGS (13)
  1. SOLU-MEDROL [Suspect]
     Dosage: 120 MG, 1X/DAY/ THREE ADMINISTRATION
     Dates: start: 20090701
  2. SOLU-MEDROL [Suspect]
     Dosage: 500 MG, SINGLE
     Route: 040
     Dates: start: 20091001, end: 20091001
  3. TOCILIZUMAB [Suspect]
     Dosage: 8 MG, MONTHLY, CYCLE 1
     Route: 042
     Dates: start: 20090928
  4. TOCILIZUMAB [Suspect]
     Dosage: 8 MG, MONTHLY, CYCLE 2
     Dates: start: 20091026
  5. TOCILIZUMAB [Suspect]
     Dosage: 8 MG, MONTHLY, CYCLE 3
     Dates: start: 20091123
  6. TOCILIZUMAB [Suspect]
     Dosage: 8 MG, MONTHLY, CYCLE 4
     Dates: start: 20100104
  7. TOCILIZUMAB [Suspect]
     Dosage: 8 MG, MONTHLY, CYCLE 5
     Dates: start: 20100201
  8. CORTANCYL [Suspect]
     Dosage: 10 MG, 1X/DAY
     Route: 048
  9. CEBUTID [Concomitant]
     Dosage: 1 DF, 1X/DAY
  10. INIPOMP [Concomitant]
     Dosage: 20 MG, 1X/DAY
  11. LAMALINE [Concomitant]
     Dosage: UNK
  12. SPECIAFOLDINE [Concomitant]
     Dosage: 10 MG, WEEKLY
  13. METHOTREXATE [Concomitant]
     Dosage: 10 MG, WEEKLY

REACTIONS (2)
  - TENDON INJURY [None]
  - THROMBOPHLEBITIS SUPERFICIAL [None]
